FAERS Safety Report 5193424-9 (Version None)
Quarter: 2006Q4

REPORT INFORMATION
  Report Type: 
  Country: None (occurrence: None)
  Receive Date: 20061228
  Receipt Date: 20060419
  Transmission Date: 20070319
  Serious: No
  Sender: FDA-Public Use
  Company Number: US-GLAXOSMITHKLINE-A0602446A

PATIENT
  Sex: Female

DRUGS (3)
  1. FLONASE [Suspect]
     Dosage: 2SPR PER DAY
     Route: 045
  2. DIOVAN [Concomitant]
  3. LIPITOR [Concomitant]

REACTIONS (1)
  - CANDIDIASIS [None]
